FAERS Safety Report 18879386 (Version 2)
Quarter: 2021Q1

REPORT INFORMATION
  Report Type: Spontaneous
  Country: IL (occurrence: IL)
  Receive Date: 20210211
  Receipt Date: 20210226
  Transmission Date: 20210420
  Serious: Yes (Other)
  Sender: FDA-Public Use
  Company Number: IL-TEVA-2021-IL-1879139

PATIENT
  Sex: Female

DRUGS (1)
  1. DEXTROAMPHET SACCHARAT, AMPHET ASPARTATE, DEXTROAMPHET SULFATE AND AMPHET SULFAT [Suspect]
     Active Substance: AMPHETAMINE ASPARTATE\AMPHETAMINE SULFATE\DEXTROAMPHETAMINE SACCHARATE\DEXTROAMPHETAMINE SULFATE
     Dosage: 20 MG
     Route: 065

REACTIONS (22)
  - Hallucination [Unknown]
  - Discomfort [Unknown]
  - Insomnia [Unknown]
  - Product quality issue [Unknown]
  - Rebound effect [Unknown]
  - Chest discomfort [Unknown]
  - Blister [Unknown]
  - Therapeutic product effect decreased [Unknown]
  - Therapeutic product effect incomplete [Unknown]
  - Restlessness [Unknown]
  - Bruxism [Unknown]
  - Fatigue [Unknown]
  - Adverse event [Unknown]
  - Angina pectoris [Unknown]
  - Irritability [Unknown]
  - Drug ineffective [Unknown]
  - Depressed mood [Unknown]
  - Abdominal pain [Unknown]
  - Jaw clicking [Unknown]
  - Restless legs syndrome [Unknown]
  - Rash [Unknown]
  - Headache [Unknown]
